FAERS Safety Report 19807553 (Version 1)
Quarter: 2021Q3

REPORT INFORMATION
  Report Type: Spontaneous
  Country: US (occurrence: US)
  Receive Date: 20210908
  Receipt Date: 20210908
  Transmission Date: 20211014
  Serious: No
  Sender: FDA-Public Use
  Company Number: US-AMERICAN REGENT INC-2021000780

PATIENT
  Age: 48 Year
  Sex: Male

DRUGS (1)
  1. INJECTAFER [Suspect]
     Active Substance: FERRIC CARBOXYMALTOSE
     Indication: IRON DEFICIENCY ANAEMIA
     Dosage: 750 MILLIGRAM, IN  100 ML OF NS, SINGLE
     Dates: start: 20210322, end: 20210322

REACTIONS (1)
  - Infusion site extravasation [Recovering/Resolving]

NARRATIVE: CASE EVENT DATE: 20210322
